FAERS Safety Report 12770330 (Version 4)
Quarter: 2017Q1

REPORT INFORMATION
  Report Type: Report from Study
  Country: US (occurrence: US)
  Receive Date: 20160922
  Receipt Date: 20170313
  Transmission Date: 20170428
  Serious: Yes (Other)
  Sender: FDA-Public Use
  Company Number: PHEH2016US023836

PATIENT
  Sex: Male
  Weight: 70.3 kg

DRUGS (3)
  1. COSENTYX [Suspect]
     Active Substance: SECUKINUMAB
     Indication: ANKYLOSING SPONDYLITIS
     Dosage: 150 MG/KG, QMO
     Route: 058
     Dates: start: 20160517
  2. LIDOCAINE. [Concomitant]
     Active Substance: LIDOCAINE
     Indication: ANAESTHESIA
     Route: 065
  3. PROPOFOL. [Concomitant]
     Active Substance: PROPOFOL
     Indication: ANAESTHESIA
     Route: 065

REACTIONS (11)
  - Gastrooesophageal reflux disease [Unknown]
  - Proctitis ulcerative [Unknown]
  - Rhinorrhoea [Unknown]
  - Colitis ulcerative [Recovering/Resolving]
  - Musculoskeletal discomfort [Unknown]
  - Back pain [Unknown]
  - Pain [Unknown]
  - Erythema [Unknown]
  - Anal ulcer [Unknown]
  - Nasopharyngitis [Unknown]
  - Haematochezia [Unknown]
